FAERS Safety Report 5066182-6 (Version None)
Quarter: 2006Q3

REPORT INFORMATION
  Report Type: 
  Country: None (occurrence: None)
  Receive Date: 20060703
  Receipt Date: 20060414
  Transmission Date: 20061208
  Serious: Yes (Hospitalization)
  Sender: FDA-Public Use
  Company Number: WAES 0604USA02222

PATIENT
  Sex: 0

DRUGS (3)
  1. HYZAAR [Suspect]
     Indication: DRUG USE FOR UNKNOWN INDICATION
     Dosage: 50/12.5 MG/PO
     Route: 048
  2. GLUCOPHAGE [Concomitant]
  3. [THERAPY UNSPECIFIED] [Concomitant]

REACTIONS (1)
  - BLOOD SODIUM DECREASED [None]
